FAERS Safety Report 11239308 (Version 1)
Quarter: 2015Q3

REPORT INFORMATION
  Report Type: Spontaneous
  Country: US (occurrence: None)
  Receive Date: 20150702
  Receipt Date: 20150702
  Transmission Date: 20151125
  Serious: Yes (Death, Life-Threatening, Hospitalization, Disabling)
  Sender: FDA-Public Use
  Company Number: None

PATIENT
  Age: 85 Year
  Sex: Male
  Weight: 77.11 kg

DRUGS (1)
  1. AMIODARONE 200 MG MERCK [Suspect]
     Active Substance: AMIODARONE
     Indication: ATRIAL FIBRILLATION
     Route: 048
     Dates: start: 20150426, end: 20150526

REACTIONS (4)
  - Dyspnoea [None]
  - Quality of life decreased [None]
  - Fatigue [None]
  - Incorrect dose administered [None]

NARRATIVE: CASE EVENT DATE: 20150526
